FAERS Safety Report 8314706-5 (Version None)
Quarter: 2012Q2

REPORT INFORMATION
  Report Type: 
  Country: None (occurrence: None)
  Receive Date: 20120426
  Receipt Date: 20120424
  Transmission Date: 20120825
  Serious: Yes (Death)
  Sender: FDA-Public Use
  Company Number: US-GILEAD-2012-0053256

PATIENT
  Sex: Male

DRUGS (1)
  1. RANEXA [Suspect]
     Indication: ANGINA PECTORIS
     Dosage: 500 MG, BID
     Route: 048
     Dates: start: 20080929

REACTIONS (4)
  - PNEUMONIA ASPIRATION [None]
  - PARKINSON'S DISEASE [None]
  - RESPIRATORY ARREST [None]
  - RESPIRATORY FAILURE [None]
